FAERS Safety Report 8064389-7 (Version None)
Quarter: 2012Q1

REPORT INFORMATION
  Report Type: 
  Country: None (occurrence: None)
  Receive Date: 20120123
  Receipt Date: 20120118
  Transmission Date: 20120608
  Serious: Yes (Hospitalization, Other)
  Sender: FDA-Public Use
  Company Number: US-ASTRAZENECA-2007UW04926

PATIENT
  Age: 53 Year
  Sex: Male
  Weight: 88.5 kg

DRUGS (10)
  1. ARICEPT [Concomitant]
  2. DEPAKOTE [Concomitant]
  3. WELLBUTRIN [Concomitant]
  4. BUSPAR [Concomitant]
  5. NEURONTIN [Concomitant]
  6. SEROQUEL [Suspect]
     Indication: DEPRESSION
     Route: 048
     Dates: start: 20020101, end: 20030101
  7. ZYPREXA [Suspect]
     Route: 065
  8. AMBIEN [Concomitant]
  9. SEROQUEL [Suspect]
     Indication: BIPOLAR DISORDER
     Route: 048
     Dates: start: 20020101, end: 20030101
  10. SEROQUEL [Suspect]
     Indication: SCHIZOPHRENIA
     Route: 048
     Dates: start: 20020101, end: 20030101

REACTIONS (7)
  - WEIGHT INCREASED [None]
  - DYSPNOEA [None]
  - SARCOIDOSIS [None]
  - DIABETES MELLITUS [None]
  - MALAISE [None]
  - DIZZINESS [None]
  - THROMBOSIS [None]
